FAERS Safety Report 25793912 (Version 1)
Quarter: 2025Q3

REPORT INFORMATION
  Report Type: Spontaneous
  Country: JP (occurrence: JP)
  Receive Date: 20250912
  Receipt Date: 20250912
  Transmission Date: 20251020
  Serious: No
  Sender: ASTELLAS
  Company Number: JP-ASTELLAS-2025-AER-049221

PATIENT
  Age: 12 Year
  Sex: Male

DRUGS (3)
  1. SOLIFENACIN [Suspect]
     Active Substance: SOLIFENACIN
     Indication: Micturition urgency
     Route: 065
  2. SOLIFENACIN [Suspect]
     Active Substance: SOLIFENACIN
     Indication: Incontinence
  3. VIBEGRON [Concomitant]
     Active Substance: VIBEGRON
     Indication: Dysuria
     Route: 065

REACTIONS (1)
  - Product use issue [Unknown]
